FAERS Safety Report 10023795 (Version 2)
Quarter: 2014Q2

REPORT INFORMATION
  Report Type: Spontaneous
  Country: US (occurrence: US)
  Receive Date: 20140320
  Receipt Date: 20140401
  Transmission Date: 20141212
  Serious: Yes (Other)
  Sender: FDA-Public Use
  Company Number: 2014SP000822

PATIENT
  Age: 81 Year
  Sex: Female
  Weight: 73 kg

DRUGS (10)
  1. BROVANA [Suspect]
     Indication: CHRONIC OBSTRUCTIVE PULMONARY DISEASE
     Route: 055
     Dates: start: 20130327
  2. SPIRIVA [Concomitant]
  3. NASONEX [Concomitant]
     Route: 045
  4. CRESTOR [Concomitant]
     Route: 048
  5. HYDROCHLOROTHIAZIDE [Concomitant]
     Route: 048
  6. ARMOUR THYROID [Concomitant]
     Route: 048
  7. DILTIAZEM [Concomitant]
     Route: 048
  8. BABY ASPIRIN [Concomitant]
     Route: 048
  9. ALBUTEROL [Concomitant]
  10. RETIN-A [Concomitant]

REACTIONS (3)
  - Burns third degree [Recovering/Resolving]
  - Cough [Unknown]
  - Wheezing [Unknown]
